FAERS Safety Report 5557435-3 (Version None)
Quarter: 2007Q4

REPORT INFORMATION
  Report Type: 
  Country: None (occurrence: None)
  Receive Date: 20071214
  Receipt Date: 20071210
  Transmission Date: 20080405
  Serious: Yes (Other)
  Sender: FDA-Public Use
  Company Number: BR-JNJFOC-20071202999

PATIENT
  Age: 2 Year
  Sex: Female
  Weight: 12 kg

DRUGS (2)
  1. TYLENOL (CAPLET) [Suspect]
     Route: 048
  2. TYLENOL (CAPLET) [Suspect]
     Indication: ACCIDENTAL EXPOSURE
     Route: 048

REACTIONS (3)
  - ACCIDENTAL DRUG INTAKE BY CHILD [None]
  - HYPERHIDROSIS [None]
  - SOMNOLENCE [None]
